FAERS Safety Report 6337302-8 (Version None)
Quarter: 2009Q3

REPORT INFORMATION
  Report Type: 
  Country: None (occurrence: None)
  Receive Date: 20090828
  Receipt Date: 20090828
  Transmission Date: 20100115
  Serious: Yes (Hospitalization)
  Sender: FDA-Public Use
  Company Number: None

PATIENT
  Age: 53 Year
  Sex: Female
  Weight: 76.7 kg

DRUGS (2)
  1. TAXOTERE [Suspect]
     Indication: OVARIAN CANCER
     Dosage: 30 MG/KG DAYS 1+8 EVERY 21 IV DRIP
     Route: 041
     Dates: start: 20090706, end: 20090824
  2. AVASTIN [Suspect]
     Dosage: 15 MG/KG Q21 DAYS IV DRIP
     Route: 041
     Dates: start: 20090706, end: 20090817

REACTIONS (2)
  - ABDOMINAL PAIN UPPER [None]
  - CANDIDIASIS [None]
